FAERS Safety Report 9611039 (Version 2)
Quarter: 2013Q4

REPORT INFORMATION
  Report Type: Report from Study
  Country: US (occurrence: US)
  Receive Date: 20131009
  Receipt Date: 20131121
  Transmission Date: 20140711
  Serious: Yes (Hospitalization)
  Sender: FDA-Public Use
  Company Number: US-BRISTOL-MYERS SQUIBB COMPANY-19466622

PATIENT
  Age: 86 Year
  Sex: Male
  Weight: 70.4 kg

DRUGS (12)
  1. IPILIMUMAB [Suspect]
     Indication: MALIGNANT MELANOMA
     Dosage: 08OCT13-2ND DOSE?30OCT13:3RD DOSE
     Route: 042
     Dates: start: 20130827
  2. GM-CSF [Suspect]
     Indication: MALIGNANT MELANOMA
     Route: 058
     Dates: start: 20130827, end: 20131031
  3. ASPIRIN [Concomitant]
  4. VITAMIN D3 [Concomitant]
     Dosage: 1DF:10000IU
  5. POTASSIUM GLUCONATE [Concomitant]
  6. VICODIN [Concomitant]
  7. PLAVIX [Concomitant]
  8. RAPAFLO [Concomitant]
  9. ROPINIROLE [Concomitant]
  10. ATENOLOL [Concomitant]
  11. RESVERATROL [Concomitant]
  12. MELATONIN [Concomitant]
     Dosage: AT NIGHT

REACTIONS (2)
  - Atrial fibrillation [Unknown]
  - Hyperthyroidism [Unknown]
